FAERS Safety Report 9382798 (Version 1)
Quarter: 2013Q3

REPORT INFORMATION
  Report Type: Report from Study
  Country: US (occurrence: US)
  Receive Date: 20130703
  Receipt Date: 20130703
  Transmission Date: 20140515
  Serious: Yes (Death)
  Sender: FDA-Public Use
  Company Number: US-PFIZER INC-2013S1004420

PATIENT
  Sex: Female

DRUGS (3)
  1. ALPRAZOLAM [Suspect]
     Dosage: UNK
     Route: 065
  2. OXYCODONE HYDROCHLORIDE [Suspect]
     Dosage: UNK
     Route: 065
  3. CODEINE PHOSPHATE [Suspect]
     Dosage: UNK
     Route: 065

REACTIONS (1)
  - Intentional drug misuse [Fatal]
